FAERS Safety Report 5525122-3 (Version None)
Quarter: 2007Q4

REPORT INFORMATION
  Report Type: 
  Country: None (occurrence: None)
  Receive Date: 20071119
  Receipt Date: 20071110
  Transmission Date: 20080405
  Serious: Yes (Other)
  Sender: FDA-Public Use
  Company Number: 2007SP003917

PATIENT
  Age: 58 Year
  Sex: Female
  Weight: 58.9676 kg

DRUGS (8)
  1. PEG-INTRON [Suspect]
     Indication: HEPATITIS C
     Dosage: ;SC
     Route: 058
     Dates: start: 20070125, end: 20070316
  2. PEG-INTRON [Suspect]
     Indication: HEPATITIS C
     Dosage: ;SC
     Route: 058
     Dates: start: 20070705, end: 20070726
  3. RIBAVIRIN [Suspect]
     Indication: HEPATITIS C
     Dosage: ;PO
     Route: 048
     Dates: start: 20070125, end: 20070316
  4. RIBAVIRIN [Suspect]
     Indication: HEPATITIS C
     Dosage: ;PO
     Route: 048
     Dates: start: 20070705, end: 20070726
  5. FOSAMAX [Suspect]
     Indication: DRUG USE FOR UNKNOWN INDICATION
  6. ACTONEL [Suspect]
     Indication: DRUG USE FOR UNKNOWN INDICATION
  7. METHIMAZOLE [Concomitant]
  8. TOPROL-XL [Concomitant]

REACTIONS (37)
  - ABDOMINAL PAIN [None]
  - ALOPECIA [None]
  - ANOREXIA [None]
  - ANXIETY [None]
  - BLOOD PRESSURE INCREASED [None]
  - BODY TEMPERATURE INCREASED [None]
  - BONE PAIN [None]
  - CARDIAC MURMUR [None]
  - CHOLELITHIASIS [None]
  - CONDITION AGGRAVATED [None]
  - CONSTIPATION [None]
  - CRYING [None]
  - DIZZINESS [None]
  - DYSGEUSIA [None]
  - DYSPHAGIA [None]
  - DYSPNOEA [None]
  - FATIGUE [None]
  - FEELING ABNORMAL [None]
  - GAIT DISTURBANCE [None]
  - GALLBLADDER DISORDER [None]
  - GALLBLADDER POLYP [None]
  - HYPERTHYROIDISM [None]
  - HYPOTENSION [None]
  - ILL-DEFINED DISORDER [None]
  - INFLUENZA LIKE ILLNESS [None]
  - MOOD SWINGS [None]
  - MUSCLE SPASMS [None]
  - MYALGIA [None]
  - OSTEOPOROSIS [None]
  - PALPITATIONS [None]
  - PHARYNGOLARYNGEAL PAIN [None]
  - POLYP [None]
  - STRESS [None]
  - TENSION [None]
  - VARICOSE VEIN [None]
  - VIRAL LOAD INCREASED [None]
  - WEIGHT DECREASED [None]
